FAERS Safety Report 17214095 (Version 1)
Quarter: 2019Q4

REPORT INFORMATION
  Report Type: Spontaneous
  Country: US (occurrence: US)
  Receive Date: 20191230
  Receipt Date: 20191230
  Transmission Date: 20200122
  Serious: Yes (Hospitalization)
  Sender: FDA-Public Use
  Company Number: US-BIOCODEX SA-201901743

PATIENT

DRUGS (3)
  1. DIASTAT [Concomitant]
     Active Substance: DIAZEPAM
     Indication: PRODUCT USED FOR UNKNOWN INDICATION
     Route: 065
  2. KLONOPIN [Concomitant]
     Active Substance: CLONAZEPAM
     Indication: PRODUCT USED FOR UNKNOWN INDICATION
     Route: 065
  3. DIACOMIT [Suspect]
     Active Substance: STIRIPENTOL
     Indication: SEVERE MYOCLONIC EPILEPSY OF INFANCY
     Dosage: 500MG AT MORNING, 500MG IN AFTERNOON AND 500MG IN EVENING.
     Route: 048
     Dates: start: 20190524

REACTIONS (4)
  - Pneumonia pneumococcal [Unknown]
  - Seizure [Unknown]
  - Respiratory syncytial virus infection [Unknown]
  - Product use in unapproved indication [Unknown]
